FAERS Safety Report 12418718 (Version 1)
Quarter: 2016Q2

REPORT INFORMATION
  Report Type: Spontaneous
  Country: US (occurrence: US)
  Receive Date: 20160531
  Receipt Date: 20160531
  Transmission Date: 20160815
  Serious: Yes (Death, Other)
  Sender: FDA-Public Use
  Company Number: US-SUN PHARMACEUTICAL INDUSTRIES LTD-2016US-117082

PATIENT
  Age: 36 Year
  Sex: Male

DRUGS (3)
  1. AZATHIOPRINE. [Suspect]
     Active Substance: AZATHIOPRINE
     Indication: IMMUNOSUPPRESSANT DRUG THERAPY
     Dosage: 100 MG, DAILY
     Route: 065
  2. CYCLOSPORIN-A [Suspect]
     Active Substance: CYCLOSPORINE
     Indication: IMMUNOSUPPRESSANT DRUG THERAPY
     Dosage: 60 MG, BID
     Route: 065
  3. PREDNISONE. [Suspect]
     Active Substance: PREDNISONE
     Indication: IMMUNOSUPPRESSANT DRUG THERAPY
     Dosage: 15 MG/D AND 20 MG/D ON ALTERNATE DAYS
     Route: 065

REACTIONS (6)
  - Disseminated cryptococcosis [Unknown]
  - Mycobacterium chelonae infection [Recovered/Resolved]
  - Cryptococcal cutaneous infection [Unknown]
  - Pneumonia cryptococcal [Unknown]
  - Cerebral haemorrhage [Fatal]
  - Infective tenosynovitis [Unknown]

NARRATIVE: CASE EVENT DATE: 198811
